FAERS Safety Report 9448526 (Version 2)
Quarter: 2013Q3

REPORT INFORMATION
  Report Type: Spontaneous
  Country: US (occurrence: US)
  Receive Date: 20130808
  Receipt Date: 20130826
  Transmission Date: 20140515
  Serious: Yes (Hospitalization, Other)
  Sender: FDA-Public Use
  Company Number: US-ELI_LILLY_AND_COMPANY-US201308000818

PATIENT
  Sex: Female

DRUGS (3)
  1. HUMALOG LISPRO [Suspect]
     Indication: TYPE 2 DIABETES MELLITUS
     Dosage: UNK UNK, PRN
  2. METFORMIN [Concomitant]
     Dosage: UNK, PRN
  3. LANTUS [Concomitant]
     Dosage: UNK, PRN

REACTIONS (6)
  - Joint injury [Recovering/Resolving]
  - Fall [Recovered/Resolved]
  - Foot fracture [Unknown]
  - Nervous system disorder [Unknown]
  - Blood glucose increased [Not Recovered/Not Resolved]
  - Memory impairment [Unknown]
